FAERS Safety Report 7754786-9 (Version None)
Quarter: 2011Q3

REPORT INFORMATION
  Report Type: 
  Country: None (occurrence: None)
  Receive Date: 20110916
  Receipt Date: 20110908
  Transmission Date: 20111222
  Serious: Yes (Hospitalization, Other)
  Sender: FDA-Public Use
  Company Number: US-BIOGENIDEC-2011BI034746

PATIENT
  Age: 39 Year
  Sex: Female

DRUGS (2)
  1. TYSABRI [Suspect]
     Route: 042
     Dates: start: 20080805, end: 20091217
  2. TYSABRI [Suspect]
     Indication: MULTIPLE SCLEROSIS
     Route: 042
     Dates: start: 20100701

REACTIONS (4)
  - HEADACHE [None]
  - MICROANGIOPATHY [None]
  - MYOCARDIAL INFARCTION [None]
  - CHEST PAIN [None]
